FAERS Safety Report 5517431-9 (Version None)
Quarter: 2007Q4

REPORT INFORMATION
  Report Type: 
  Country: None (occurrence: None)
  Receive Date: 20071108
  Receipt Date: 20070430
  Transmission Date: 20080405
  Serious: Yes (Other)
  Sender: FDA-Public Use
  Company Number: 2007S1000194

PATIENT
  Sex: Female
  Weight: 93 kg

DRUGS (7)
  1. CUBICIN [Suspect]
     Indication: STAPHYLOCOCCAL BACTERAEMIA
     Dosage: 4.5 MG/KG;Q24H;IV
     Route: 042
     Dates: start: 20070425, end: 20070426
  2. VANCOMYCIN [Concomitant]
  3. IRON [Concomitant]
  4. M.V.I. [Concomitant]
  5. METOPROLOL SUCCINATE [Concomitant]
  6. RANITIDINE HCL [Concomitant]
  7. DOCOSATE [Concomitant]

REACTIONS (1)
  - RENAL TUBULAR NECROSIS [None]
